FAERS Safety Report 6710689-X (Version None)
Quarter: 2010Q2

REPORT INFORMATION
  Report Type: 
  Country: None (occurrence: None)
  Receive Date: 20100504
  Receipt Date: 20100504
  Transmission Date: 20101027
  Serious: Yes (Other)
  Sender: FDA-Public Use
  Company Number: None

PATIENT
  Age: 7 Year
  Sex: Female
  Weight: 22.2263 kg

DRUGS (1)
  1. WAL-ZYR CHILDREN'S CHEWABLE 10MG WALGREEN'S [Suspect]
     Indication: SEASONAL ALLERGY
     Dosage: 10MG DAILY PO
     Route: 048
     Dates: start: 20100228, end: 20100429

REACTIONS (2)
  - FORMICATION [None]
  - PRURITUS [None]
